FAERS Safety Report 23919385 (Version 1)
Quarter: 2024Q2

REPORT INFORMATION
  Report Type: Spontaneous
  Country: US (occurrence: US)
  Receive Date: 20240530
  Receipt Date: 20240530
  Transmission Date: 20240715
  Serious: Yes (Death)
  Sender: FDA-Public Use
  Company Number: US-PFIZER INC-PV202400070242

PATIENT
  Age: 6 Decade
  Sex: Male

DRUGS (4)
  1. VORICONAZOLE [Suspect]
     Active Substance: VORICONAZOLE
     Indication: Aureobasidium pullulans infection
     Dosage: UNK
  2. VORICONAZOLE [Suspect]
     Active Substance: VORICONAZOLE
     Indication: Fungal infection
  3. POSACONAZOLE [Concomitant]
     Active Substance: POSACONAZOLE
     Indication: Aureobasidium pullulans infection
     Dosage: UNK
  4. POSACONAZOLE [Concomitant]
     Active Substance: POSACONAZOLE
     Indication: Fungal infection

REACTIONS (1)
  - Drug ineffective [Fatal]
